FAERS Safety Report 4833216-0 (Version None)
Quarter: 2005Q4

REPORT INFORMATION
  Report Type: 
  Country: None (occurrence: None)
  Receive Date: 20051117
  Receipt Date: 20051107
  Transmission Date: 20060501
  Serious: Yes (Other)
  Sender: FDA-Public Use
  Company Number: FR_051107455

PATIENT
  Age: 75 Year
  Sex: Female

DRUGS (3)
  1. FORTEO [Suspect]
     Indication: OSTEOPOROSIS
     Dosage: 20 UG DAY
     Dates: start: 20050704
  2. OROCAL D (3) [Concomitant]
  3. ASPEGIC 325 [Concomitant]

REACTIONS (2)
  - HEMIPLEGIA [None]
  - PAIN [None]
